FAERS Safety Report 8582958-2 (Version None)
Quarter: 2012Q2

REPORT INFORMATION
  Report Type: 
  Country: None (occurrence: None)
  Receive Date: 20120423
  Receipt Date: 20080522
  Transmission Date: 20120825
  Serious: Yes (Other)
  Sender: FDA-Public Use
  Company Number: PHEH2008US04833

PATIENT
  Age: 70 Year
  Sex: Male

DRUGS (1)
  1. FORADIL [Suspect]

REACTIONS (2)
  - URTICARIA [None]
  - FACE OEDEMA [None]
